FAERS Safety Report 13183577 (Version 1)
Quarter: 2017Q1

REPORT INFORMATION
  Report Type: Spontaneous
  Country: None (occurrence: US)
  Receive Date: 20170203
  Receipt Date: 20170203
  Transmission Date: 20170428
  Serious: Yes (Other)
  Sender: FDA-Public Use
  Company Number: None

PATIENT
  Age: 58 Year
  Sex: Male
  Weight: 93.98 kg

DRUGS (1)
  1. TOUJEO [Suspect]
     Active Substance: INSULIN GLARGINE
     Indication: TYPE 2 DIABETES MELLITUS
     Dosage: TOUJEO DAILY 24USUBQ
     Route: 058
     Dates: start: 20160616, end: 20160618

REACTIONS (3)
  - Rash generalised [None]
  - Scar [None]
  - Sunburn [None]

NARRATIVE: CASE EVENT DATE: 201606
